FAERS Safety Report 19932631 (Version 1)
Quarter: 2021Q4

REPORT INFORMATION
  Report Type: Spontaneous
  Country: US (occurrence: US)
  Receive Date: 20211007
  Receipt Date: 20211007
  Transmission Date: 20220303
  Serious: No
  Sender: FDA-Public Use
  Company Number: None

PATIENT
  Sex: Female

DRUGS (1)
  1. BUPROPION [Suspect]
     Active Substance: BUPROPION
     Indication: Ex-tobacco user
     Route: 048
     Dates: start: 20210819, end: 20211007

REACTIONS (3)
  - Product odour abnormal [None]
  - Drug ineffective [None]
  - Nicotine dependence [None]

NARRATIVE: CASE EVENT DATE: 20211007
